FAERS Safety Report 6169819-3 (Version None)
Quarter: 2009Q2

REPORT INFORMATION
  Report Type: 
  Country: None (occurrence: None)
  Receive Date: 20090428
  Receipt Date: 20090220
  Transmission Date: 20091009
  Serious: Yes (Other)
  Sender: FDA-Public Use
  Company Number: IT-PFIZER INC-2009172632

PATIENT
  Age: 45 Year
  Sex: Female

DRUGS (4)
  1. XALATAN [Suspect]
     Indication: GLAUCOMA
     Dosage: UNK
     Route: 047
  2. TIMOPTIC [Concomitant]
     Indication: GLAUCOMA
     Dosage: UNK
  3. TRUSOPT [Concomitant]
     Indication: GLAUCOMA
     Dosage: UNK
  4. DIAMOX [Concomitant]
     Indication: GLAUCOMA
     Dosage: UNK

REACTIONS (1)
  - INTRAOCULAR PRESSURE INCREASED [None]
